FAERS Safety Report 16597890 (Version 1)
Quarter: 2019Q3

REPORT INFORMATION
  Report Type: Spontaneous
  Country: US (occurrence: US)
  Receive Date: 20190719
  Receipt Date: 20190719
  Transmission Date: 20191004
  Serious: No
  Sender: FDA-Public Use
  Company Number: US-PFIZER INC-2019303373

PATIENT
  Age: 60 Year
  Sex: Male
  Weight: 43.61 kg

DRUGS (2)
  1. ADVIL [Suspect]
     Active Substance: IBUPROFEN
     Dosage: 220 MG, (220MG TABLETS, 320 TABLETS)
  2. TYLENOL [Suspect]
     Active Substance: ACETAMINOPHEN
     Dosage: 325 MG, (325MG, 325 CAPLETS)

REACTIONS (2)
  - Nerve compression [Unknown]
  - Drug ineffective [Unknown]
